FAERS Safety Report 6410609-1 (Version None)
Quarter: 2009Q4

REPORT INFORMATION
  Report Type: 
  Country: None (occurrence: None)
  Receive Date: 20091021
  Receipt Date: 20091021
  Transmission Date: 20100525
  Serious: Yes (Other)
  Sender: FDA-Public Use
  Company Number: None

PATIENT
  Age: 48 Year
  Sex: Female
  Weight: 109.5 kg

DRUGS (6)
  1. JANUVIA [Suspect]
     Indication: DIABETES MELLITUS
     Dates: start: 20090601
  2. JANUVIA [Suspect]
     Indication: DIABETES MELLITUS
     Dates: start: 20091001
  3. METFORMIN HCL [Concomitant]
  4. GLIPIZIDE [Concomitant]
  5. LISINOPRIL [Concomitant]
  6. LIPITOR [Concomitant]

REACTIONS (1)
  - PANCREATITIS [None]
